FAERS Safety Report 6790571 (Version 7)
Quarter: 2018Q4

REPORT INFORMATION
  Report Type: Spontaneous
  Country: JP (occurrence: JP)
  Receive Date: 20081017
  Receipt Date: 20181127
  Transmission Date: 20190205
  Serious: Yes (Other)
  Sender: FDA-Public Use
  Company Number: PHHY2008JP24116

PATIENT
  Age: 79 Year
  Sex: Male
  Weight: 46 kg

DRUGS (13)
  1. CALCIUM LACTATE [Concomitant]
     Active Substance: CALCIUM LACTATE
     Indication: MINERAL SUPPLEMENTATION
     Dosage: 3 G
     Route: 048
     Dates: start: 20071019
  2. OXYCONTIN [Concomitant]
     Active Substance: OXYCODONE HYDROCHLORIDE
     Indication: ANALGESIC THERAPY
     Dosage: 20 MG
     Route: 048
     Dates: start: 200609, end: 20061218
  3. OXYCONTIN [Concomitant]
     Active Substance: OXYCODONE HYDROCHLORIDE
     Dosage: UNK
     Dates: start: 20080430
  4. GASTER [Concomitant]
     Active Substance: FAMOTIDINE
     Indication: PEPTIC ULCER
     Dosage: 20 MG
     Route: 048
     Dates: start: 20071102, end: 20080828
  5. OMEPRAL [Concomitant]
     Active Substance: OMEPRAZOLE
     Indication: PEPTIC ULCER
     Dosage: 20 MG
     Route: 048
     Dates: start: 20080828
  6. ESTRAMUSTINE PHOSPHATE SODIUM [Concomitant]
     Active Substance: ESTRAMUSTINE PHOSPHATE SODIUM
     Indication: PROSTATE CANCER
     Dosage: 2 DF
     Route: 048
     Dates: start: 20071011
  7. MAGLAX [Concomitant]
     Active Substance: MAGNESIUM OXIDE
     Dosage: 990 MG
     Route: 048
     Dates: start: 200609
  8. HARNAL [Concomitant]
     Active Substance: TAMSULOSIN HYDROCHLORIDE
     Dosage: 0.2MG
     Route: 048
     Dates: start: 20080829
  9. DEXAMETHASONE. [Concomitant]
     Active Substance: DEXAMETHASONE
     Indication: PROSTATE CANCER
     Dosage: 1 MG
     Route: 048
     Dates: start: 20071102
  10. ZOMETA [Suspect]
     Active Substance: ZOLEDRONIC ACID
     Indication: METASTASES TO BONE
     Route: 042
     Dates: start: 20070920, end: 20080819
  11. MOBIC [Concomitant]
     Active Substance: MELOXICAM
     Indication: ANALGESIC THERAPY
     Dosage: 10 MG
     Route: 048
     Dates: start: 200609, end: 20080828
  12. LASIX [Concomitant]
     Active Substance: FUROSEMIDE
     Indication: POLYURIA
     Dosage: 10 MG
     Route: 048
     Dates: start: 20080627, end: 20080704
  13. MUCOSTA [Concomitant]
     Active Substance: REBAMIPIDE
     Dosage: 300 MG
     Route: 048
     Dates: start: 20080828

REACTIONS (16)
  - Blood alkaline phosphatase increased [Unknown]
  - Osteomyelitis [Recovering/Resolving]
  - Blood urea increased [Unknown]
  - Hypocalcaemia [Recovered/Resolved]
  - Blood glucose increased [Unknown]
  - Blood potassium increased [Unknown]
  - Haematocrit decreased [Unknown]
  - Osteonecrosis of jaw [Recovering/Resolving]
  - Gingival disorder [Recovering/Resolving]
  - Red blood cell count decreased [Unknown]
  - Bone disorder [Recovering/Resolving]
  - Haemoglobin decreased [Unknown]
  - Dental care [Unknown]
  - Purulent discharge [Recovering/Resolving]
  - Gingival pain [Recovering/Resolving]
  - Cancer pain [Recovered/Resolved]

NARRATIVE: CASE EVENT DATE: 20070921
